FAERS Safety Report 7545484-5 (Version None)
Quarter: 2011Q2

REPORT INFORMATION
  Report Type: 
  Country: None (occurrence: None)
  Receive Date: 20110614
  Receipt Date: 20100209
  Transmission Date: 20111010
  Serious: No
  Sender: FDA-Public Use
  Company Number: US-BAYER-201014411NA

PATIENT
  Age: 58 Year
  Sex: Female
  Weight: 44.444 kg

DRUGS (1)
  1. MIRENA [Suspect]
     Indication: MENORRHAGIA
     Dosage: 20 MCG/24HR, UNK
     Route: 015
     Dates: start: 20080201, end: 20100127

REACTIONS (1)
  - POST PROCEDURAL HAEMORRHAGE [None]
